FAERS Safety Report 6233896-1 (Version None)
Quarter: 2009Q2

REPORT INFORMATION
  Report Type: 
  Country: None (occurrence: None)
  Receive Date: 20090616
  Receipt Date: 20090616
  Transmission Date: 20091009
  Serious: Yes (Other)
  Sender: FDA-Public Use
  Company Number: None

PATIENT
  Age: 30 Year
  Sex: Male
  Weight: 83.9154 kg

DRUGS (1)
  1. CIPROFLOXACIN [Suspect]
     Indication: PROSTATITIS
     Dosage: TAKE 1 TABLET TWICE DAILY PO
     Route: 048
     Dates: start: 20090415, end: 20090503

REACTIONS (5)
  - ARTHRALGIA [None]
  - EYE PAIN [None]
  - FATIGUE [None]
  - HEADACHE [None]
  - MYODESOPSIA [None]
